FAERS Safety Report 23613754 (Version 1)
Quarter: 2024Q1

REPORT INFORMATION
  Report Type: Spontaneous
  Country: US (occurrence: None)
  Receive Date: 20240310
  Receipt Date: 20240310
  Transmission Date: 20240410
  Serious: No
  Sender: FDA-Public Use
  Company Number: 2024A052786

PATIENT
  Sex: Female

DRUGS (1)
  1. BUDESONIDE\FORMOTEROL [Suspect]
     Active Substance: BUDESONIDE\FORMOTEROL
     Indication: Dyspnoea
     Dosage: 160 UG
     Route: 055
     Dates: start: 20240229

REACTIONS (3)
  - Dyspnoea [Unknown]
  - Drug dose omission by device [Unknown]
  - Device use issue [Unknown]

NARRATIVE: CASE EVENT DATE: 20240229
